FAERS Safety Report 4383579-8 (Version None)
Quarter: 2004Q2

REPORT INFORMATION
  Report Type: 
  Country: None (occurrence: None)
  Receive Date: 20040618
  Receipt Date: 20040602
  Transmission Date: 20050107
  Serious: Yes (Other)
  Sender: FDA-Public Use
  Company Number: 200404817

PATIENT

DRUGS (1)
  1. RESTASIS [Suspect]
     Indication: KERATOCONJUNCTIVITIS SICCA

REACTIONS (1)
  - CORNEAL ULCER [None]
